FAERS Safety Report 25102615 (Version 1)
Quarter: 2025Q1

REPORT INFORMATION
  Report Type: Report from Study
  Country: US (occurrence: US)
  Receive Date: 20250321
  Receipt Date: 20250321
  Transmission Date: 20250409
  Serious: Yes (Other)
  Sender: UCB
  Company Number: US-UCBSA-2024067947

PATIENT
  Sex: Male
  Weight: 152 kg

DRUGS (2)
  1. FINTEPLA [Suspect]
     Active Substance: FENFLURAMINE
     Indication: Epilepsy
     Dosage: 5.9 MILLILITER, 2X/DAY (BID)
     Dates: start: 20240326
  2. FINTEPLA [Suspect]
     Active Substance: FENFLURAMINE

REACTIONS (2)
  - Seizure [Not Recovered/Not Resolved]
  - Tricuspid valve incompetence [Unknown]

NARRATIVE: CASE EVENT DATE: 20240101
